FAERS Safety Report 6988938-2 (Version None)
Quarter: 2010Q3

REPORT INFORMATION
  Report Type: 
  Country: None (occurrence: None)
  Receive Date: 20100916
  Receipt Date: 20090821
  Transmission Date: 20110219
  Serious: Yes (Other)
  Sender: FDA-Public Use
  Company Number: UY-PFIZER INC-2009246663

PATIENT
  Age: 67 Year
  Sex: Female
  Weight: 100 kg

DRUGS (6)
  1. LYRICA [Suspect]
     Indication: PAIN
     Dosage: 75 MG, 2X/DAY
     Route: 048
     Dates: start: 20090701, end: 20090806
  2. ATENOLOL [Concomitant]
     Dosage: UNK
     Route: 048
  3. ESIDRIX [Concomitant]
     Dosage: UNK
     Route: 048
  4. MICARDIS [Concomitant]
     Dosage: UNK
     Route: 048
  5. DIOSMIN [Concomitant]
     Dosage: UNK
     Route: 048
  6. ALLOPURINOL [Concomitant]
     Dosage: UNK
     Route: 048

REACTIONS (7)
  - BLOOD PRESSURE INCREASED [None]
  - DRUG INEFFECTIVE [None]
  - EYE SWELLING [None]
  - HEADACHE [None]
  - OEDEMA PERIPHERAL [None]
  - PAIN [None]
  - WEIGHT INCREASED [None]
